FAERS Safety Report 5387218-9 (Version None)
Quarter: 2007Q3

REPORT INFORMATION
  Report Type: 
  Country: None (occurrence: None)
  Receive Date: 20070716
  Receipt Date: 20070709
  Transmission Date: 20080115
  Serious: Yes (Hospitalization)
  Sender: FDA-Public Use
  Company Number: US-RB-007076-07

PATIENT
  Sex: Male

DRUGS (10)
  1. SUBOXONE [Suspect]
     Route: 060
     Dates: start: 20070616
  2. METFORMIN HCL [Concomitant]
     Route: 048
  3. PRILOSEC [Concomitant]
     Route: 048
  4. NEURONTIN [Concomitant]
     Route: 048
  5. ASPIRIN [Concomitant]
     Route: 048
  6. ZOCOR [Concomitant]
     Route: 048
  7. PROZAC [Concomitant]
     Indication: DEPRESSION
     Route: 060
  8. SEROQUEL [Concomitant]
     Route: 048
  9. TRAZODONE HCL [Concomitant]
     Route: 048
  10. LOPRESSOR [Concomitant]
     Indication: HYPERTENSION
     Route: 048

REACTIONS (1)
  - CHEST PAIN [None]
